FAERS Safety Report 18001041 (Version 2)
Quarter: 2020Q3

REPORT INFORMATION
  Report Type: Spontaneous
  Country: US (occurrence: US)
  Receive Date: 20200709
  Receipt Date: 20200811
  Transmission Date: 20201103
  Serious: Yes (Death, Life-Threatening, Hospitalization, Other)
  Sender: FDA-Public Use
  Company Number: US-GILEAD-2020-0480947

PATIENT
  Age: 72 Year
  Sex: Male
  Weight: 88.6 kg

DRUGS (44)
  1. REMDESIVIR. [Suspect]
     Active Substance: REMDESIVIR
     Indication: COVID-19
     Dosage: 200 MG, ONCE
     Route: 042
     Dates: start: 20200517, end: 20200517
  2. REMDESIVIR. [Suspect]
     Active Substance: REMDESIVIR
     Dosage: 100 MG, QD
     Route: 042
     Dates: start: 20200518, end: 20200522
  3. ENOXAPARIN [Concomitant]
     Active Substance: ENOXAPARIN
     Dosage: 40 MG
     Route: 058
     Dates: start: 20200516, end: 20200518
  4. MIDAZOLAM. [Concomitant]
     Active Substance: MIDAZOLAM
     Dosage: UNK
     Route: 042
     Dates: start: 20200521, end: 20200529
  5. VASOPRESSIN. [Concomitant]
     Active Substance: VASOPRESSIN
     Dosage: UNK
     Dates: start: 20200522, end: 20200529
  6. VANCOMYCIN [Suspect]
     Active Substance: VANCOMYCIN
     Indication: COVID-19
     Dosage: 2 G, ONCE
     Route: 042
     Dates: start: 20200517, end: 20200517
  7. LEVOPHED [Suspect]
     Active Substance: NOREPINEPHRINE BITARTRATE
     Indication: HYPOTENSION
     Dosage: UNK
     Route: 042
     Dates: start: 20200522, end: 20200529
  8. TAMSULOSIN [Concomitant]
     Active Substance: TAMSULOSIN
  9. PROPOFOL. [Concomitant]
     Active Substance: PROPOFOL
     Dosage: UNK
     Route: 042
     Dates: start: 20200520, end: 20200529
  10. LACTULOSE. [Concomitant]
     Active Substance: LACTULOSE
     Dosage: 20 MG, TID
     Route: 048
     Dates: start: 20200522, end: 20200524
  11. LINEZOLID. [Concomitant]
     Active Substance: LINEZOLID
     Dosage: 600 MG, BID
     Route: 042
     Dates: start: 20200523, end: 20200529
  12. SODIUM BICARBONATE. [Concomitant]
     Active Substance: SODIUM BICARBONATE
  13. NOREPINEPHRINE. [Concomitant]
     Active Substance: NOREPINEPHRINE
     Dosage: UNK
     Route: 042
     Dates: start: 20200520, end: 20200529
  14. VANCOMYCIN [Suspect]
     Active Substance: VANCOMYCIN
     Indication: PNEUMONIA BACTERIAL
     Dosage: 1 G, BID
     Route: 042
     Dates: start: 20200517, end: 20200519
  15. PANTOPRAZOLE [Concomitant]
     Active Substance: PANTOPRAZOLE
     Dosage: 40 MG
     Route: 042
     Dates: start: 20200518, end: 20200529
  16. CEFEPIME [Concomitant]
     Active Substance: CEFEPIME HYDROCHLORIDE
     Dosage: 2 G, Q8H
     Route: 042
     Dates: start: 20200518, end: 20200523
  17. MEROPENEM. [Concomitant]
     Active Substance: MEROPENEM
     Dosage: 1 G, BID
     Route: 042
     Dates: start: 20200523, end: 20200529
  18. PHENYLEPHRINE [Concomitant]
     Active Substance: PHENYLEPHRINE HYDROCHLORIDE
  19. ATORVASTATIN [Concomitant]
     Active Substance: ATORVASTATIN
  20. LANTUS [Concomitant]
     Active Substance: INSULIN GLARGINE
  21. CEFTRIAXONE. [Concomitant]
     Active Substance: CEFTRIAXONE
  22. OXYGEN. [Concomitant]
     Active Substance: OXYGEN
  23. ASCORBIC ACID. [Concomitant]
     Active Substance: ASCORBIC ACID
     Dosage: 500 MG
     Route: 048
     Dates: start: 20200516, end: 20200517
  24. MULTIVITAMIN WITH MINERALS [Concomitant]
     Active Substance: MINERALS\VITAMINS
     Dosage: UNK, QD
     Route: 048
     Dates: start: 20200521, end: 20200529
  25. ENOXAPARIN [Concomitant]
     Active Substance: ENOXAPARIN
     Dosage: 90 MG
     Route: 058
     Dates: start: 20200519, end: 20200523
  26. AZITHROMYCIN ANHYDROUS. [Concomitant]
     Active Substance: AZITHROMYCIN ANHYDROUS
     Dosage: 500 MG, QD
     Route: 042
     Dates: start: 20200517, end: 20200523
  27. FENTANYL. [Concomitant]
     Active Substance: FENTANYL
     Dosage: UNK
     Route: 042
     Dates: start: 20200521, end: 20200529
  28. LACTULOSE. [Concomitant]
     Active Substance: LACTULOSE
     Dosage: 20 MG, Q6H
     Route: 048
     Dates: start: 20200524, end: 20200525
  29. NIMBEX [NIMESULIDE] [Concomitant]
     Active Substance: NIMESULIDE
     Dosage: UNK
     Route: 042
     Dates: start: 20200522, end: 20200527
  30. RIFAXIMIN. [Concomitant]
     Active Substance: RIFAXIMIN
     Dosage: 550 MG, BID
     Route: 048
     Dates: start: 20200524, end: 20200529
  31. MICAFUNGIN. [Concomitant]
     Active Substance: MICAFUNGIN SODIUM
  32. VANCOMYCIN [Suspect]
     Active Substance: VANCOMYCIN
     Dosage: 1250 MG, TID
     Route: 042
     Dates: start: 20200520, end: 20200520
  33. ALBUMIN [Concomitant]
     Active Substance: ALBUMIN HUMAN
  34. LASIX [Concomitant]
     Active Substance: FUROSEMIDE
     Dosage: 20 MG, BID
     Route: 042
     Dates: start: 20200518, end: 20200523
  35. EZETIMIBE. [Concomitant]
     Active Substance: EZETIMIBE
  36. LACTULOSE. [Concomitant]
     Active Substance: LACTULOSE
     Dosage: 30 MG, Q4HR
     Route: 048
     Dates: start: 20200525, end: 20200529
  37. AMIODARONE [Concomitant]
     Active Substance: AMIODARONE
     Dosage: UNK
     Route: 042
     Dates: start: 20200524, end: 20200529
  38. VANCOMYCIN [Suspect]
     Active Substance: VANCOMYCIN
     Dosage: 1 G, BID
     Route: 042
     Dates: start: 20200521, end: 20200522
  39. ALBUTEROL [SALBUTAMOL] [Concomitant]
     Active Substance: ALBUTEROL
     Dosage: UNK
     Dates: start: 20200516, end: 20200529
  40. THIAMINE. [Concomitant]
     Active Substance: THIAMINE
     Dosage: 100 MG, BID
     Route: 048
     Dates: start: 20200521, end: 20200529
  41. HYDROCHLOROTHIAZIDE;IRBESARTAN [Concomitant]
     Active Substance: HYDROCHLOROTHIAZIDE\IRBESARTAN
  42. ISOSORBIDE MONONITRATE. [Concomitant]
     Active Substance: ISOSORBIDE MONONITRATE
     Dosage: 30 MG, QD
     Route: 048
     Dates: start: 20200516, end: 20200520
  43. HYDROCORTISONE. [Concomitant]
     Active Substance: HYDROCORTISONE
     Dosage: 50 MG, Q6H
     Route: 042
     Dates: start: 20200523, end: 20200526
  44. HEPARIN [Concomitant]
     Active Substance: HEPARIN SODIUM
     Dosage: UNK
     Route: 042
     Dates: start: 20200523, end: 20200529

REACTIONS (2)
  - Renal failure [Fatal]
  - Ammonia increased [Unknown]

NARRATIVE: CASE EVENT DATE: 20200522
